FAERS Safety Report 11874625 (Version 1)
Quarter: 2015Q4

REPORT INFORMATION
  Report Type: Spontaneous
  Country: US (occurrence: None)
  Receive Date: 20151228
  Receipt Date: 20151228
  Transmission Date: 20160305
  Serious: Yes (Hospitalization, Disabling, Other)
  Sender: FDA-Public Use
  Company Number: None

PATIENT
  Age: 74 Year
  Sex: Male
  Weight: 80.74 kg

DRUGS (7)
  1. MINERALS [Concomitant]
     Active Substance: MINERALS
  2. PROPRANOLOL [Concomitant]
     Active Substance: PROPRANOLOL\PROPRANOLOL HYDROCHLORIDE
  3. LORAZEPAM. [Concomitant]
     Active Substance: LORAZEPAM
  4. SUCRALFATE. [Concomitant]
     Active Substance: SUCRALFATE
  5. MULTI-VITAMINS (CALCIUM PANTOTHENATE, FOLIC ACID, VITAMINS NOS) [Concomitant]
     Active Substance: VITAMINS
  6. GABAPENTIN. [Concomitant]
     Active Substance: GABAPENTIN
  7. OMEPRAZOLE 20 MG PER CAPSULE KREMERS URBAN [Suspect]
     Active Substance: OMEPRAZOLE
     Indication: BARRETT^S OESOPHAGUS
     Dosage: 2 PILLS X 2 DAILY (80 MG)
     Route: 048

REACTIONS (3)
  - Spinal column stenosis [None]
  - Scoliosis [None]
  - Body height decreased [None]

NARRATIVE: CASE EVENT DATE: 20140804
